FAERS Safety Report 6438458-9 (Version None)
Quarter: 2009Q4

REPORT INFORMATION
  Report Type: 
  Country: None (occurrence: None)
  Receive Date: 20091110
  Receipt Date: 20091030
  Transmission Date: 20100525
  Serious: Yes (Death, Life-Threatening)
  Sender: FDA-Public Use
  Company Number: CLOF-1000756

PATIENT
  Age: 75 Year
  Sex: Female

DRUGS (3)
  1. EVOLTRA (CLOFARABINE) SOLUTION FOR INFUSION [Suspect]
     Indication: ACUTE MYELOID LEUKAEMIA
     Dates: start: 20091014, end: 20091022
  2. DAUNORUBICIN (DAUNORUBICIN) UNKNOWN [Suspect]
     Indication: ACUTE MYELOID LEUKAEMIA
     Dates: start: 20091014, end: 20091022
  3. MYLOTARG [Suspect]
     Indication: ACUTE MYELOID LEUKAEMIA
     Dates: start: 20091014, end: 20091022

REACTIONS (4)
  - DIARRHOEA [None]
  - FLUID OVERLOAD [None]
  - RENAL FAILURE [None]
  - SEPSIS [None]
